FAERS Safety Report 12633258 (Version 2)
Quarter: 2016Q3

REPORT INFORMATION
  Report Type: Spontaneous
  Country: US (occurrence: US)
  Receive Date: 20160808
  Receipt Date: 20160808
  Transmission Date: 20161109
  Serious: No
  Sender: FDA-Public Use
  Company Number: US-BEH-2016060192

PATIENT
  Age: 58 Year
  Sex: Female
  Weight: 85 kg

DRUGS (38)
  1. HIZENTRA [Suspect]
     Active Substance: HUMAN IMMUNOGLOBULIN G
     Route: 058
     Dates: start: 20101018
  2. LIDOCAINE/PRILOCAINE [Concomitant]
     Active Substance: LIDOCAINE\PRILOCAINE
  3. PREDNISONE. [Concomitant]
     Active Substance: PREDNISONE
  4. CLONAZEPAM. [Concomitant]
     Active Substance: CLONAZEPAM
  5. GUAIFENSIN [Concomitant]
  6. VALTREX [Concomitant]
     Active Substance: VALACYCLOVIR HYDROCHLORIDE
  7. PLAQUENIL [Concomitant]
     Active Substance: HYDROXYCHLOROQUINE SULFATE
  8. SYNTHROID [Concomitant]
     Active Substance: LEVOTHYROXINE SODIUM
  9. RESTASIS [Concomitant]
     Active Substance: CYCLOSPORINE
  10. LIDODERM [Concomitant]
     Active Substance: LIDOCAINE
  11. VIVELLE-DOT [Concomitant]
     Active Substance: ESTRADIOL
  12. HIZENTRA [Suspect]
     Active Substance: HUMAN IMMUNOGLOBULIN G
     Route: 058
  13. ACETAMINOPHEN. [Concomitant]
     Active Substance: ACETAMINOPHEN
  14. SKELAXIN [Concomitant]
     Active Substance: METAXALONE
  15. PROCORT NEB [Concomitant]
  16. HIZENTRA [Suspect]
     Active Substance: HUMAN IMMUNOGLOBULIN G
     Route: 058
  17. VITAMIN D [Concomitant]
     Active Substance: CHOLECALCIFEROL
  18. HIZENTRA [Suspect]
     Active Substance: HUMAN IMMUNOGLOBULIN G
     Route: 058
  19. HIZENTRA [Suspect]
     Active Substance: HUMAN IMMUNOGLOBULIN G
     Route: 058
  20. PROBIOTIC FORMULA [Concomitant]
  21. TYLENOL ARTHRITIS PAIN [Concomitant]
     Active Substance: ACETAMINOPHEN
  22. HIZENTRA [Suspect]
     Active Substance: HUMAN IMMUNOGLOBULIN G
     Indication: IMMUNODEFICIENCY COMMON VARIABLE
     Route: 058
  23. OXYGEN. [Concomitant]
     Active Substance: OXYGEN
  24. DIPHENHYDRAMINE. [Concomitant]
     Active Substance: DIPHENHYDRAMINE
  25. EPIPEN [Concomitant]
     Active Substance: EPINEPHRINE
  26. BUDESONIDE. [Concomitant]
     Active Substance: BUDESONIDE
  27. NYSTATIN. [Concomitant]
     Active Substance: NYSTATIN
  28. COUMADIN [Concomitant]
     Active Substance: WARFARIN SODIUM
  29. NEURONTIN [Concomitant]
     Active Substance: GABAPENTIN
  30. ADVAIR HFA [Concomitant]
     Active Substance: FLUTICASONE PROPIONATE\SALMETEROL XINAFOATE
  31. OXYCODONE HYDROCHLORIDE. [Concomitant]
     Active Substance: OXYCODONE HYDROCHLORIDE
  32. ZOFRAN [Concomitant]
     Active Substance: ONDANSETRON HYDROCHLORIDE
  33. ESTRING [Concomitant]
     Active Substance: ESTRADIOL
  34. HIZENTRA [Suspect]
     Active Substance: HUMAN IMMUNOGLOBULIN G
     Route: 058
  35. VALIUM [Concomitant]
     Active Substance: DIAZEPAM
  36. DIFLUCAN [Concomitant]
     Active Substance: FLUCONAZOLE
  37. ZITHROMAX [Concomitant]
     Active Substance: AZITHROMYCIN DIHYDRATE
  38. OXYCONTIN [Concomitant]
     Active Substance: OXYCODONE HYDROCHLORIDE

REACTIONS (3)
  - Sinusitis [Unknown]
  - Fall [Unknown]
  - Administration site swelling [Unknown]

NARRATIVE: CASE EVENT DATE: 20151125
